FAERS Safety Report 4318252-5 (Version None)
Quarter: 2004Q1

REPORT INFORMATION
  Report Type: 
  Country: None (occurrence: None)
  Receive Date: 20040317
  Receipt Date: 20040302
  Transmission Date: 20041129
  Serious: Yes (Hospitalization)
  Sender: FDA-Public Use
  Company Number: SE-BRISTOL-MYERS SQUIBB COMPANY-12534343

PATIENT
  Age: 83 Year
  Sex: Female

DRUGS (6)
  1. METFORMIN HCL [Suspect]
     Indication: DIABETES MELLITUS
     Dates: end: 20030820
  2. GLYBURIDE [Suspect]
     Indication: DIABETES MELLITUS
     Dates: end: 20030809
  3. ATENOLOL [Suspect]
     Indication: ESSENTIAL HYPERTENSION
     Dates: end: 20030801
  4. TRIMETHOPRIM [Suspect]
     Indication: URINARY TRACT INFECTION
     Dates: start: 20030815, end: 20030820
  5. ZUCLOPENTHIXOL [Suspect]
     Dates: end: 20030801
  6. TROMBYL [Concomitant]

REACTIONS (4)
  - CEREBRAL ATROPHY [None]
  - FALL [None]
  - NEUTROPENIA [None]
  - URINARY TRACT INFECTION [None]
